FAERS Safety Report 5870533-X (Version None)
Quarter: 2008Q3

REPORT INFORMATION
  Report Type: 
  Country: None (occurrence: None)
  Receive Date: 20080904
  Receipt Date: 20080806
  Transmission Date: 20090109
  Serious: Yes (Other)
  Sender: FDA-Public Use
  Company Number: CL-MERCK-0808CHL00001B1

PATIENT
  Sex: Male
  Weight: 1 kg

DRUGS (2)
  1. COZAAR [Suspect]
     Indication: ESSENTIAL HYPERTENSION
     Route: 064
  2. ACENOCOUMAROL [Concomitant]
     Indication: PULMONARY EMBOLISM
     Route: 064

REACTIONS (4)
  - FOETAL HEART RATE ABNORMAL [None]
  - PREMATURE BABY [None]
  - RENAL FAILURE ACUTE [None]
  - UNDERWEIGHT [None]
